FAERS Safety Report 17851580 (Version 1)
Quarter: 2020Q2

REPORT INFORMATION
  Report Type: Report from Study
  Country: GB (occurrence: GB)
  Receive Date: 20200602
  Receipt Date: 20200602
  Transmission Date: 20200714
  Serious: Yes (Hospitalization, Other)
  Sender: FDA-Public Use
  Company Number: GB-UCBSA-2020022102

PATIENT
  Age: 35 Year
  Sex: Female

DRUGS (2)
  1. BRIVARACETAM [Suspect]
     Active Substance: BRIVARACETAM
     Indication: PARTIAL SEIZURES
     Dosage: 100 MG AM ANDE 125 MG PM
     Route: 048
     Dates: start: 20181121
  2. ZONISAMIDE. [Concomitant]
     Active Substance: ZONISAMIDE
     Indication: PRODUCT USED FOR UNKNOWN INDICATION
     Dosage: UNK
     Route: 048

REACTIONS (9)
  - Fall [Unknown]
  - Prescribed overdose [Unknown]
  - Suicidal ideation [Unknown]
  - Off label use [Unknown]
  - Head injury [Recovered/Resolved]
  - Limb injury [Recovered/Resolved]
  - Depression [Not Recovered/Not Resolved]
  - Seizure [Unknown]
  - Delusion [Recovered/Resolved]

NARRATIVE: CASE EVENT DATE: 20181121
